FAERS Safety Report 8357137-4 (Version None)
Quarter: 2012Q2

REPORT INFORMATION
  Report Type: 
  Country: None (occurrence: None)
  Receive Date: 20120514
  Receipt Date: 20120507
  Transmission Date: 20120825
  Serious: Yes (Hospitalization)
  Sender: FDA-Public Use
  Company Number: US-BAYER-2012-023816

PATIENT
  Age: 43 Year
  Sex: Female
  Weight: 96.145 kg

DRUGS (5)
  1. GAS-X [Concomitant]
     Dosage: 180 MG, PRN
     Route: 048
  2. VICODIN [Concomitant]
     Indication: PAIN
     Dosage: 5 - 500 MG, 1 - 2 TABLETS AS NEEDED EVERY 4 HOURS
     Route: 048
  3. YASMIN [Suspect]
     Dosage: UNK
     Dates: start: 20030101, end: 20070501
  4. TORADOL [Concomitant]
     Indication: PAIN
     Dosage: 10 MG, AS NEEDED EVERY 8 HOURS
     Route: 048
  5. VITAMIN TAB [Concomitant]
     Dosage: UNK
     Dates: start: 20070530

REACTIONS (10)
  - INJURY [None]
  - DYSPNOEA [None]
  - BACK PAIN [None]
  - GENERAL PHYSICAL HEALTH DETERIORATION [None]
  - PAIN [None]
  - EMOTIONAL DISTRESS [None]
  - PULMONARY EMBOLISM [None]
  - ANXIETY [None]
  - DEEP VEIN THROMBOSIS [None]
  - CHEST PAIN [None]
